FAERS Safety Report 4561426-9 (Version None)
Quarter: 2005Q1

REPORT INFORMATION
  Report Type: 
  Country: None (occurrence: None)
  Receive Date: 20050121
  Receipt Date: 20041201
  Transmission Date: 20050727
  Serious: Yes (Death, Hospitalization, Other)
  Sender: FDA-Public Use
  Company Number: 2005006620

PATIENT
  Age: 86 Year
  Sex: Male
  Weight: 104.3273 kg

DRUGS (10)
  1. EMCYT [Suspect]
     Indication: PROSTATE CANCER
     Dosage: ORAL
     Route: 048
     Dates: start: 20040310, end: 20040101
  2. THERAPEUTIC RADIOPHARMACEUTICALS (THERAPEUTIC RADIOPHARMACEUTICALS) [Suspect]
     Indication: PROSTATE CANCER
     Dosage: TOPICAL
     Route: 061
  3. LEUPRORELIN ACETATE (LEUPRORELIN ACETATE) [Suspect]
     Indication: ILL-DEFINED DISORDER
  4. BICALUTAMIDE (BICALUTAMIDE) [Suspect]
     Indication: ILL-DEFINED DISORDER
     Dosage: ORAL
     Route: 048
  5. CALCITRIOL [Suspect]
     Indication: ILL-DEFINED DISORDER
     Dosage: ORAL
     Route: 048
  6. VIAGRA [Suspect]
     Indication: ILL-DEFINED DISORDER
  7. ZOLEDRONIC ACID (ZOLEDRONIC ACID) [Suspect]
     Indication: ILL-DEFINED DISORDER
  8. OXYBUTYNIN CHLORIDE [Suspect]
     Indication: ILL-DEFINED DISORDER
     Dates: start: 20040101
  9. ALL OTHER THERAPEUTIC PRODUCTS (ALL OTHER THERAPEUTIC PRODUCTS) [Suspect]
     Indication: ILL-DEFINED DISORDER
  10. TAMSULOSIN (TAMSULOSIN) [Concomitant]

REACTIONS (7)
  - ABDOMINAL PAIN UPPER [None]
  - BLOOD URINE PRESENT [None]
  - DECREASED APPETITE [None]
  - DIARRHOEA [None]
  - DRUG INEFFECTIVE [None]
  - NAUSEA [None]
  - PROSTATIC SPECIFIC ANTIGEN INCREASED [None]
